FAERS Safety Report 7134482-1 (Version None)
Quarter: 2010Q4

REPORT INFORMATION
  Report Type: 
  Country: None (occurrence: None)
  Receive Date: 20101203
  Receipt Date: 20101201
  Transmission Date: 20110411
  Serious: Yes (Other)
  Sender: FDA-Public Use
  Company Number: JP-PFIZER INC-2010160919

PATIENT
  Age: 62 Year
  Sex: Female

DRUGS (4)
  1. DISOPYRAMIDE [Suspect]
     Route: 048
  2. HERBESSER ^TANABE^ [Suspect]
  3. CARVEDILOL [Concomitant]
     Dosage: 12.5MG/DAY
  4. CARVEDILOL [Concomitant]
     Dosage: 2.5MG/DAY

REACTIONS (2)
  - SICK SINUS SYNDROME [None]
  - XANTHOPSIA [None]
